FAERS Safety Report 23917682 (Version 1)
Quarter: 2024Q2

REPORT INFORMATION
  Report Type: Spontaneous
  Country: US (occurrence: US)
  Receive Date: 20240530
  Receipt Date: 20240530
  Transmission Date: 20240716
  Serious: Yes (Other)
  Sender: FDA-Public Use
  Company Number: US-PROCTER_AND_GAMBLE-PH24004325

PATIENT
  Sex: Male

DRUGS (2)
  1. VICKS VAPOCOOL SEVERE CHERRY FREEZE [Suspect]
     Active Substance: MENTHOL
     Indication: Cough
     Dosage: 6 LOZNGE [5-6 WITHIN A COUPLE OF HOURS]
     Route: 048
  2. VICKS VAPOCOOL SEVERE CHERRY FREEZE [Suspect]
     Active Substance: MENTHOL
     Dosage: TWO DAYS LATER
     Route: 048

REACTIONS (2)
  - Seizure [Recovered/Resolved]
  - Overdose [Unknown]
